FAERS Safety Report 4322523-6 (Version None)
Quarter: 2004Q1

REPORT INFORMATION
  Report Type: 
  Country: None (occurrence: None)
  Receive Date: 20040324
  Receipt Date: 20040316
  Transmission Date: 20041129
  Serious: Yes (Other)
  Sender: FDA-Public Use
  Company Number: 200410945JP

PATIENT
  Age: 43 Year
  Sex: Female

DRUGS (1)
  1. LASIX [Suspect]

REACTIONS (1)
  - PSEUDO-BARTTER SYNDROME [None]
